FAERS Safety Report 24375480 (Version 2)
Quarter: 2024Q4

REPORT INFORMATION
  Report Type: Spontaneous
  Country: BG (occurrence: BG)
  Receive Date: 20240928
  Receipt Date: 20241015
  Transmission Date: 20250114
  Serious: Yes (Hospitalization, Other)
  Sender: ACCORD
  Company Number: BG-Accord-447782

PATIENT
  Age: 74 Year
  Sex: Female

DRUGS (10)
  1. METHOTREXATE [Suspect]
     Active Substance: METHOTREXATE
     Indication: Product used for unknown indication
     Dosage: TWO TABLETS ONCE A WEEK
  2. RAMIPRIL [Suspect]
     Active Substance: RAMIPRIL
     Indication: Product used for unknown indication
     Dosage: ONE TABLET AS NEEDED
     Dates: start: 2023
  3. RIVAROXABAN [Suspect]
     Active Substance: RIVAROXABAN
     Indication: Product used for unknown indication
     Dosage: ONE TABLET DAILY
     Dates: start: 2023
  4. FOLIC ACID [Suspect]
     Active Substance: FOLIC ACID
     Indication: Product used for unknown indication
     Dates: start: 2023
  5. BISOPROLOL FUMARATE [Suspect]
     Active Substance: BISOPROLOL FUMARATE
     Indication: Product used for unknown indication
     Dosage: TWO TABLETS DAILY
     Dates: start: 2023
  6. METHYLPREDNISOLONE [Suspect]
     Active Substance: METHYLPREDNISOLONE
     Indication: Product used for unknown indication
     Dosage: ONE TABLET DAILY
     Dates: start: 2010
  7. EPLERENONE [Concomitant]
     Active Substance: EPLERENONE
     Dosage: ONE TABLET DAILY
     Dates: start: 2023
  8. ETORICOXIB [Concomitant]
     Active Substance: ETORICOXIB
     Dosage: ONCE EVERY TWO WEEK
     Dates: start: 2023
  9. DIGOXIN [Concomitant]
     Active Substance: DIGOXIN
     Dosage: HALF A TABLET ONCE DAILY
  10. VITAMIN D [Concomitant]
     Active Substance: VITAMIN D NOS

REACTIONS (1)
  - Basal cell carcinoma [Recovered/Resolved]
